FAERS Safety Report 10224034 (Version 2)
Quarter: 2014Q2

REPORT INFORMATION
  Report Type: Spontaneous
  Country: US (occurrence: US)
  Receive Date: 20140609
  Receipt Date: 20140619
  Transmission Date: 20141212
  Serious: Yes (Hospitalization)
  Sender: FDA-Public Use
  Company Number: US-009507513-1406USA003621

PATIENT
  Sex: Female

DRUGS (1)
  1. EMEND [Suspect]
     Dosage: UNK
     Route: 048

REACTIONS (2)
  - Intestinal obstruction [Unknown]
  - Adverse event [Unknown]
